FAERS Safety Report 17535895 (Version 3)
Quarter: 2021Q3

REPORT INFORMATION
  Report Type: Report from Study
  Country: None (occurrence: AR)
  Receive Date: 20200313
  Receipt Date: 20210917
  Transmission Date: 20211014
  Serious: Yes (Hospitalization, Other)
  Sender: FDA-Public Use
  Company Number: AR-ABBVIE-20K-007-3317792-00

PATIENT
  Age: 63 Year
  Sex: Female

DRUGS (1)
  1. HUMIRA [Suspect]
     Active Substance: ADALIMUMAB
     Indication: PSORIASIS
     Route: 058
     Dates: start: 20181015

REACTIONS (11)
  - Salivary gland calculus [Unknown]
  - Oral infection [Unknown]
  - Viral pharyngitis [Unknown]
  - Salivary gland fistula [Unknown]
  - Salivary gland calculus [Recovered/Resolved]
  - Vomiting [Unknown]
  - Sialoadenitis [Unknown]
  - Weight decreased [Unknown]
  - Hypophagia [Unknown]
  - Discomfort [Unknown]
  - Pyrexia [Unknown]

NARRATIVE: CASE EVENT DATE: 2020
